FAERS Safety Report 10756844 (Version 1)
Quarter: 2015Q1

REPORT INFORMATION
  Report Type: Report from Study
  Country: US (occurrence: US)
  Receive Date: 20150203
  Receipt Date: 20150203
  Transmission Date: 20150721
  Serious: Yes (Hospitalization, Other)
  Sender: FDA-Public Use
  Company Number: US-AMGEN-USASL2015008653

PATIENT
  Age: 65 Year
  Sex: Male

DRUGS (2)
  1. ENBREL [Suspect]
     Active Substance: ETANERCEPT
     Indication: PSORIATIC ARTHROPATHY
     Dosage: 50 MG, QWK
     Route: 058
     Dates: start: 2008, end: 2010
  2. ENBREL [Suspect]
     Active Substance: ETANERCEPT
     Indication: PSORIASIS

REACTIONS (6)
  - Intervertebral disc protrusion [Unknown]
  - Pain [Unknown]
  - Laceration [Not Recovered/Not Resolved]
  - Impaired healing [Not Recovered/Not Resolved]
  - Musculoskeletal disorder [Unknown]
  - Psoriasis [Not Recovered/Not Resolved]
